FAERS Safety Report 12395467 (Version 1)
Quarter: 2016Q2

REPORT INFORMATION
  Report Type: Spontaneous
  Country: US (occurrence: US)
  Receive Date: 20160523
  Receipt Date: 20160523
  Transmission Date: 20160815
  Serious: No
  Sender: FDA-Public Use
  Company Number: US-ENDO PHARMACEUTICALS INC.-2015-004799

PATIENT
  Sex: Female

DRUGS (2)
  1. SUPPRELIN LA [Suspect]
     Active Substance: HISTRELIN ACETATE
     Indication: PRECOCIOUS PUBERTY
     Route: 065
     Dates: start: 201409
  2. SUPPRELIN LA [Suspect]
     Active Substance: HISTRELIN ACETATE
     Route: 065

REACTIONS (2)
  - Mood altered [Not Recovered/Not Resolved]
  - Drug dose omission [Not Recovered/Not Resolved]
